FAERS Safety Report 10379212 (Version 1)
Quarter: 2014Q3

REPORT INFORMATION
  Report Type: Spontaneous
  Country: DE (occurrence: DE)
  Receive Date: 20140812
  Receipt Date: 20140812
  Transmission Date: 20150326
  Serious: Yes (Other)
  Sender: FDA-Public Use
  Company Number: DE-GLAXOSMITHKLINE-D0085127A

PATIENT
  Age: 34 Year
  Sex: Female
  Weight: 65 kg

DRUGS (1)
  1. REVOLADE [Suspect]
     Active Substance: ELTROMBOPAG
     Indication: IMMUNE THROMBOCYTOPENIC PURPURA
     Dosage: 50MG PER DAY
     Route: 048
     Dates: start: 20140217

REACTIONS (39)
  - Headache [Unknown]
  - Hypertension [Unknown]
  - Cough [Unknown]
  - Sinusitis [Unknown]
  - Malaise [Unknown]
  - Myosclerosis [Unknown]
  - Diarrhoea [Unknown]
  - Alopecia [Unknown]
  - Bone pain [Unknown]
  - Decreased appetite [Unknown]
  - Contusion [Unknown]
  - Sleep disorder [Unknown]
  - Arthralgia [Unknown]
  - Balance disorder [Unknown]
  - Oral pain [Unknown]
  - Sinus congestion [Unknown]
  - Ear pain [Unknown]
  - Discomfort [Unknown]
  - Nausea [Unknown]
  - Pruritus generalised [Unknown]
  - Oropharyngeal pain [Unknown]
  - Abdominal distension [Unknown]
  - Depression [Unknown]
  - Glossodynia [Unknown]
  - Gingival bleeding [Unknown]
  - Hyperhidrosis [Unknown]
  - Hot flush [Unknown]
  - Rash macular [Unknown]
  - Fatigue [Unknown]
  - Hypoaesthesia [Unknown]
  - Dysphagia [Unknown]
  - Dizziness postural [Unknown]
  - Haemorrhoids [Unknown]
  - Migraine [Unknown]
  - Myalgia [Unknown]
  - Myalgia intercostal [Unknown]
  - Muscle spasms [Unknown]
  - Mood altered [Unknown]
  - Nocturia [Unknown]

NARRATIVE: CASE EVENT DATE: 2014
